FAERS Safety Report 26122141 (Version 1)
Quarter: 2025Q4

REPORT INFORMATION
  Report Type: Spontaneous
  Country: IL (occurrence: IL)
  Receive Date: 20251204
  Receipt Date: 20251204
  Transmission Date: 20260118
  Serious: Yes (Other)
  Sender: PFIZER
  Company Number: IL-PFIZER INC-PV202500060326

PATIENT
  Age: 4 Year
  Sex: Female

DRUGS (9)
  1. ELELYSO [Suspect]
     Active Substance: TALIGLUCERASE ALFA
     Indication: Gaucher^s disease
     Dosage: 200 IU, 2/MONTH
     Route: 042
  2. ELELYSO [Suspect]
     Active Substance: TALIGLUCERASE ALFA
     Dosage: 200 IU, 2/MONTH
     Route: 042
     Dates: start: 20250521
  3. ELELYSO [Suspect]
     Active Substance: TALIGLUCERASE ALFA
     Dosage: 200 IU 3 VIALS
     Route: 042
     Dates: start: 20250608
  4. ELELYSO [Suspect]
     Active Substance: TALIGLUCERASE ALFA
     Dosage: 200 IU 3 VIALS
     Route: 042
     Dates: start: 20250714
  5. ELELYSO [Suspect]
     Active Substance: TALIGLUCERASE ALFA
     Dosage: 200 IU 3 VIALS
     Route: 042
     Dates: start: 20250826
  6. ELELYSO [Suspect]
     Active Substance: TALIGLUCERASE ALFA
     Dosage: 200 3VIALS/2 MONTHLY
     Route: 042
  7. ELELYSO [Suspect]
     Active Substance: TALIGLUCERASE ALFA
     Dosage: 200 3VIALS/2 MONTHLY
     Route: 042
     Dates: start: 20250914
  8. ELELYSO [Suspect]
     Active Substance: TALIGLUCERASE ALFA
     Dosage: 200 IU (200IU 3VIALS /2 MONTHLY)
     Route: 042
  9. ELELYSO [Suspect]
     Active Substance: TALIGLUCERASE ALFA
     Dosage: 200 IU (200IU 3 VIALS IV); RECEIVED AN INFUSION OF 10 CC
     Route: 042
     Dates: start: 20251126, end: 20251126

REACTIONS (13)
  - Anaphylactic reaction [Unknown]
  - Respiratory rate increased [Unknown]
  - Choking [Unknown]
  - Contusion [Recovered/Resolved]
  - Poor venous access [Unknown]
  - Cough [Unknown]
  - Dyspnoea [Recovered/Resolved]
  - Erythema [Unknown]
  - Heart rate increased [Unknown]
  - Abdominal pain [Unknown]
  - Asthenia [Unknown]
  - Fatigue [Unknown]
  - Inappropriate schedule of product administration [Unknown]

NARRATIVE: CASE EVENT DATE: 20250707
